FAERS Safety Report 16885776 (Version 1)
Quarter: 2019Q4

REPORT INFORMATION
  Report Type: Spontaneous
  Country: US (occurrence: US)
  Receive Date: 20191003
  Receipt Date: 20191003
  Transmission Date: 20200122
  Serious: Yes (Hospitalization)
  Sender: FDA-Public Use
  Company Number: None

PATIENT
  Age: 35 Year
  Sex: Male

DRUGS (12)
  1. PANTPPRAZOLE [Concomitant]
     Active Substance: PANTOPRAZOLE
  2. BUSPIRONE HCL [Suspect]
     Active Substance: BUSPIRONE HYDROCHLORIDE
  3. LEVETIRACETAM. [Concomitant]
     Active Substance: LEVETIRACETAM
  4. SENNA S [Concomitant]
     Active Substance: DOCUSATE SODIUM\SENNA LEAF
  5. TRAZODONE [Concomitant]
     Active Substance: TRAZODONE HYDROCHLORIDE
  6. DIVALPROEX [Concomitant]
     Active Substance: DIVALPROEX SODIUM
  7. GABAPENTIN. [Suspect]
     Active Substance: GABAPENTIN
  8. COSENTYX [Suspect]
     Active Substance: SECUKINUMAB
     Indication: PSORIASIS
     Route: 058
  9. AMITRIPTYLLINE [Concomitant]
     Active Substance: AMITRIPTYLINE
  10. BUSPIRONE [Concomitant]
     Active Substance: BUSPIRONE HYDROCHLORIDE
  11. ELIQUIS [Suspect]
     Active Substance: APIXABAN
  12. NAPROXEN. [Concomitant]
     Active Substance: NAPROXEN

REACTIONS (3)
  - Infection [None]
  - Sepsis [None]
  - Hepatic steatosis [None]

NARRATIVE: CASE EVENT DATE: 20190601
